FAERS Safety Report 6295302-0 (Version None)
Quarter: 2009Q3

REPORT INFORMATION
  Report Type: 
  Country: None (occurrence: None)
  Receive Date: 20090803
  Receipt Date: 20090720
  Transmission Date: 20100115
  Serious: Yes (Death, Other)
  Sender: FDA-Public Use
  Company Number: US-TYCO HEALTHCARE/MALLINCKRODT-T200901182

PATIENT
  Sex: Male

DRUGS (19)
  1. OPTIMARK [Suspect]
     Indication: ANGIOGRAM
     Dosage: UNK
     Route: 042
     Dates: start: 20050624, end: 20050624
  2. OMNISCAN [Suspect]
     Indication: NUCLEAR MAGNETIC RESONANCE IMAGING BRAIN
     Dosage: 20 CC (ML)
     Dates: start: 20060927, end: 20060927
  3. LANTUS [Concomitant]
     Dosage: 15 UNITS SC, IN THE MORNING
     Route: 058
  4. NOVOLOG [Concomitant]
     Dosage: 4-6 UNITS SC TID
     Route: 058
  5. PEPCID [Concomitant]
     Dosage: 20 MG, QD
  6. SENSIPAR [Concomitant]
     Dosage: 60 MG, QD
  7. MIDODRINE HYDROCHLORIDE [Concomitant]
     Dosage: 20 MG, 3X/WEEK TAKEN WITH DIALYSIS
  8. MIDODRINE HYDROCHLORIDE [Concomitant]
     Dosage: 10 MG, QD
  9. PLAVIX [Concomitant]
     Dosage: 75 MG, QD
  10. FOSRENOL [Concomitant]
     Dosage: 1000 MG, QD
  11. COUMADIN [Concomitant]
     Dosage: 3 MG, QD
  12. ZOCOR [Concomitant]
     Dosage: 20 MG, QD
  13. ZETIA [Concomitant]
     Dosage: 10 MG, AT BEDTIME
  14. PACERONE [Concomitant]
     Indication: ATRIAL FIBRILLATION
     Dosage: 200 MG, QD
  15. RENAL [Concomitant]
     Dosage: 1 CAPS DAILY
  16. NITROGLYCERIN [Concomitant]
     Dosage: 0.4 MG, AS NEEDED
     Route: 060
  17. RESTORIL                           /00393701/ [Concomitant]
     Dosage: 15 MG, AS NEEDED
  18. XANAX [Concomitant]
     Dosage: 0.25 MG, AS NEEDED
  19. NEURONTIN [Concomitant]
     Dosage: 100 MG, AT NIGHT AS NEEDED

REACTIONS (8)
  - ANAEMIA [None]
  - HYPOTENSION [None]
  - INTERNATIONAL NORMALISED RATIO INCREASED [None]
  - INTESTINAL ISCHAEMIA [None]
  - LACTIC ACIDOSIS [None]
  - LOWER GASTROINTESTINAL HAEMORRHAGE [None]
  - NEPHROGENIC SYSTEMIC FIBROSIS [None]
  - OFF LABEL USE [None]
